FAERS Safety Report 5416611-0 (Version None)
Quarter: 2007Q3

REPORT INFORMATION
  Report Type: 
  Country: None (occurrence: None)
  Receive Date: 20070815
  Receipt Date: 20070815
  Transmission Date: 20080115
  Serious: No
  Sender: FDA-Public Use
  Company Number: None

PATIENT
  Age: 66 Year
  Sex: Female
  Weight: 53.5244 kg

DRUGS (1)
  1. WELLBUTRIN XL [Suspect]
     Indication: DEPRESSION
     Dosage: 1 TABLET ONCE DAILY PO
     Route: 048
     Dates: start: 20070706, end: 20070807

REACTIONS (9)
  - DRUG INTOLERANCE [None]
  - HEARING IMPAIRED [None]
  - HYPERACUSIS [None]
  - INSOMNIA [None]
  - MALAISE [None]
  - MIGRAINE [None]
  - NAUSEA [None]
  - PAIN [None]
  - PHOTOPHOBIA [None]
